FAERS Safety Report 13384770 (Version 1)
Quarter: 2017Q1

REPORT INFORMATION
  Report Type: Spontaneous
  Country: US (occurrence: US)
  Receive Date: 20170329
  Receipt Date: 20170329
  Transmission Date: 20170429
  Serious: Yes (Other)
  Sender: FDA-Public Use
  Company Number: None

PATIENT
  Age: 37 Year
  Sex: Female
  Weight: 90 kg

DRUGS (3)
  1. HCG [Suspect]
     Active Substance: GONADOTROPHIN, CHORIONIC
     Indication: MEDICAL DIET
     Route: 058
     Dates: start: 20170306, end: 20170311
  2. IB PROFUN [Concomitant]
  3. ASPIRIN. [Concomitant]
     Active Substance: ASPIRIN

REACTIONS (5)
  - Pulse abnormal [None]
  - Accidental overdose [None]
  - Drug dispensing error [None]
  - Muscle spasms [None]
  - Erythema [None]

NARRATIVE: CASE EVENT DATE: 20170312
